FAERS Safety Report 22245549 (Version 1)
Quarter: 2023Q2

REPORT INFORMATION
  Report Type: Spontaneous
  Country: US (occurrence: None)
  Receive Date: 20230421
  Receipt Date: 20230421
  Transmission Date: 20230722
  Serious: No
  Sender: FDA-Public Use
  Company Number: None

PATIENT
  Age: 59 Year
  Sex: Female

DRUGS (2)
  1. AMBRISENTAN [Suspect]
     Active Substance: AMBRISENTAN
     Indication: Pulmonary arterial hypertension
     Dosage: FREQUENCY : DAILY;?
     Route: 048
     Dates: start: 20121126
  2. TADALAFIL [Concomitant]

REACTIONS (5)
  - Viral upper respiratory tract infection [None]
  - Bronchitis [None]
  - COVID-19 [None]
  - Ear pain [None]
  - Chills [None]

NARRATIVE: CASE EVENT DATE: 20230416
